FAERS Safety Report 7292928-2 (Version None)
Quarter: 2011Q1

REPORT INFORMATION
  Report Type: 
  Country: None (occurrence: None)
  Receive Date: 20110215
  Receipt Date: 20110204
  Transmission Date: 20110831
  Serious: Yes (Other)
  Sender: FDA-Public Use
  Company Number: FR-JNJFOC-20110107510

PATIENT

DRUGS (2)
  1. SOLU-MEDROL [Concomitant]
     Indication: PREMEDICATION
  2. REMICADE [Suspect]
     Indication: PRODUCT USED FOR UNKNOWN INDICATION
     Route: 042

REACTIONS (4)
  - HYPOTENSION [None]
  - HEADACHE [None]
  - MALAISE [None]
  - INFUSION RELATED REACTION [None]
